FAERS Safety Report 18116894 (Version 1)
Quarter: 2020Q3

REPORT INFORMATION
  Report Type: Spontaneous
  Country: US (occurrence: US)
  Receive Date: 20200806
  Receipt Date: 20200806
  Transmission Date: 20201103
  Serious: Yes (Other)
  Sender: FDA-Public Use
  Company Number: US-CIPLA LTD.-2020US05223

PATIENT

DRUGS (2)
  1. SALBUTAMOL [Suspect]
     Active Substance: ALBUTEROL
     Dosage: UNK, 2 PUFFS EVERY 4 HOURS
     Dates: start: 202007, end: 20200721
  2. SALBUTAMOL [Suspect]
     Active Substance: ALBUTEROL
     Indication: ASTHMA
     Dosage: UNK, 2 PUFFS EVERY 4 HOURS

REACTIONS (6)
  - Device defective [Unknown]
  - Device malfunction [Unknown]
  - Incorrect dose administered by device [Unknown]
  - Dyspnoea [Unknown]
  - Drug ineffective [Unknown]
  - Drug dose omission by device [Unknown]

NARRATIVE: CASE EVENT DATE: 202007
